FAERS Safety Report 20749722 (Version 1)
Quarter: 2022Q2

REPORT INFORMATION
  Report Type: Spontaneous
  Country: PT (occurrence: PT)
  Receive Date: 20220426
  Receipt Date: 20220426
  Transmission Date: 20220721
  Serious: Yes (Death, Other)
  Sender: FDA-Public Use
  Company Number: PT-GSKCCFEMEA-Case-01402003_AE-53971

PATIENT
  Age: 76 Year
  Sex: Female

DRUGS (2)
  1. JEMPERLI [Suspect]
     Active Substance: DOSTARLIMAB-GXLY
     Indication: Endometrial cancer
     Dosage: UNK (1000 MG Q6 WEEKS)
     Dates: start: 20211228
  2. JEMPERLI [Suspect]
     Active Substance: DOSTARLIMAB-GXLY
     Dosage: UNK
     Dates: start: 20220118

REACTIONS (12)
  - Sudden death [Fatal]
  - Psoriasis [Not Recovered/Not Resolved]
  - Rash [Unknown]
  - Skin exfoliation [Unknown]
  - Skin discolouration [Unknown]
  - Skin lesion [Not Recovered/Not Resolved]
  - Lymphadenopathy [Unknown]
  - DNA mismatch repair protein gene mutation [Unknown]
  - Tumour marker decreased [Not Recovered/Not Resolved]
  - Pruritus [Unknown]
  - Pigmentation disorder [Unknown]
  - Ataxia [Unknown]

NARRATIVE: CASE EVENT DATE: 20220421
